FAERS Safety Report 23665318 (Version 1)
Quarter: 2024Q1

REPORT INFORMATION
  Report Type: Report from Study
  Country: US (occurrence: US)
  Receive Date: 20240322
  Receipt Date: 20240322
  Transmission Date: 20240410
  Serious: Yes (Other)
  Sender: FDA-Public Use
  Company Number: US-ABBVIE-5685243

PATIENT
  Age: 70 Year
  Sex: Male

DRUGS (1)
  1. HUMIRA [Suspect]
     Active Substance: ADALIMUMAB
     Indication: Crohn^s disease
     Dosage: STRENGTH: 40 MG, CITRATE FREE
     Route: 058
     Dates: start: 20211216

REACTIONS (3)
  - Spinal cord injury cervical [Not Recovered/Not Resolved]
  - Clostridium difficile infection [Not Recovered/Not Resolved]
  - Spinal operation [Not Recovered/Not Resolved]

NARRATIVE: CASE EVENT DATE: 20231130
